FAERS Safety Report 21203937 (Version 2)
Quarter: 2022Q3

REPORT INFORMATION
  Report Type: Report from Study
  Country: US (occurrence: US)
  Receive Date: 20220811
  Receipt Date: 20220910
  Transmission Date: 20221026
  Serious: Yes (Other)
  Sender: FDA-Public Use
  Company Number: US-ABBVIE-22K-163-4498593-00

PATIENT
  Age: 62 Year
  Sex: Male

DRUGS (1)
  1. IMBRUVICA [Suspect]
     Active Substance: IBRUTINIB
     Indication: Chronic lymphocytic leukaemia
     Route: 048
     Dates: start: 201910

REACTIONS (6)
  - Limb operation [Unknown]
  - Nasopharyngitis [Unknown]
  - Hypersensitivity [Unknown]
  - White blood cell count increased [Unknown]
  - Cyst removal [Unknown]
  - Pain [Unknown]

NARRATIVE: CASE EVENT DATE: 20220805
